FAERS Safety Report 6916306-8 (Version None)
Quarter: 2010Q3

REPORT INFORMATION
  Report Type: 
  Country: None (occurrence: None)
  Receive Date: 20100810
  Receipt Date: 20100729
  Transmission Date: 20110219
  Serious: Yes (Death, Congenital Anomaly)
  Sender: FDA-Public Use
  Company Number: FR-PFIZER INC-2010095247

PATIENT
  Sex: Female

DRUGS (1)
  1. TRIFLUCAN [Suspect]
     Dosage: 100 MG, 1X/DAY
     Route: 064
     Dates: start: 20091001, end: 20091201

REACTIONS (5)
  - BRAIN MALFORMATION [None]
  - CEREBELLAR HYPOPLASIA [None]
  - DRUG EXPOSURE DURING PREGNANCY [None]
  - DYSMORPHISM [None]
  - PULMONARY MALFORMATION [None]
